FAERS Safety Report 24880218 (Version 1)
Quarter: 2025Q1

REPORT INFORMATION
  Report Type: Spontaneous
  Country: BR (occurrence: BR)
  Receive Date: 20250123
  Receipt Date: 20250123
  Transmission Date: 20250409
  Serious: Yes (Hospitalization, Other)
  Sender: AMGEN
  Company Number: BR-AMGEN-BRASP2025009882

PATIENT
  Age: 62 Year
  Sex: Female

DRUGS (9)
  1. TRASTUZUMAB [Suspect]
     Active Substance: TRASTUZUMAB
     Indication: HER2 positive breast cancer
     Dosage: 8 MILLIGRAM/KILOGRAM, Q3WK, (INITIAL DOSE)
     Route: 040
  2. TRASTUZUMAB [Suspect]
     Active Substance: TRASTUZUMAB
     Dosage: 6 MILLIGRAM/KILOGRAM, Q3WK, (FOLLOWED BY AND 10 CYCLES WITH TRASTUZUMAB MONOTHERAPY)
     Route: 040
  3. TRASTUZUMAB [Suspect]
     Active Substance: TRASTUZUMAB
     Route: 040
  4. TRASTUZUMAB [Suspect]
     Active Substance: TRASTUZUMAB
     Route: 040
  5. FILGRASTIM [Suspect]
     Active Substance: FILGRASTIM
     Indication: Product used for unknown indication
     Route: 065
  6. DOCETAXEL [Suspect]
     Active Substance: DOCETAXEL
     Indication: HER2 positive breast cancer
     Dosage: 75 MILLIGRAM/SQ. METER, Q3WK
     Route: 040
  7. DOCETAXEL [Suspect]
     Active Substance: DOCETAXEL
     Route: 040
  8. CARBOPLATIN [Suspect]
     Active Substance: CARBOPLATIN
     Indication: HER2 positive breast cancer
     Dosage: 360 MILLIGRAM/SQ. METER, Q3WK
     Route: 040
  9. CARBOPLATIN [Suspect]
     Active Substance: CARBOPLATIN
     Route: 040

REACTIONS (7)
  - Osteonecrosis of jaw [Unknown]
  - Myelosuppression [Unknown]
  - Oesophageal candidiasis [Unknown]
  - Thrombocytopenia [Unknown]
  - Hypokalaemia [Unknown]
  - HER2 positive breast cancer [Unknown]
  - Gingival hypertrophy [Unknown]
